FAERS Safety Report 26055056 (Version 1)
Quarter: 2025Q4

REPORT INFORMATION
  Report Type: Spontaneous
  Country: AU (occurrence: AU)
  Receive Date: 20251117
  Receipt Date: 20251117
  Transmission Date: 20260118
  Serious: Yes (Other)
  Sender: TAIHO ONCOLOGY INC
  Company Number: AU-TAIHOP-2025-012322

PATIENT
  Age: 70 Year
  Sex: Female
  Weight: 50 kg

DRUGS (1)
  1. INQOVI [Suspect]
     Active Substance: CEDAZURIDINE\DECITABINE
     Indication: Product used for unknown indication
     Dosage: FREQUENCY UNKNOWN, CYCLE 1 COMPLETED
     Route: 048

REACTIONS (1)
  - Bone marrow failure [Recovered/Resolved]
